FAERS Safety Report 4965752-0 (Version None)
Quarter: 2006Q2

REPORT INFORMATION
  Report Type: 
  Country: None (occurrence: None)
  Receive Date: 20060405
  Receipt Date: 20060405
  Transmission Date: 20061013
  Serious: Yes (Other)
  Sender: FDA-Public Use
  Company Number: None

PATIENT
  Age: 65 Year
  Sex: Male
  Weight: 128 kg

DRUGS (1)
  1. ROSIGLITAZONE [Suspect]
     Indication: DIABETES MELLITUS
     Dosage: 4 MG    DAILY   PO
     Route: 048
     Dates: start: 20030103, end: 20051030

REACTIONS (2)
  - DYSPNOEA EXERTIONAL [None]
  - OEDEMA PERIPHERAL [None]
